FAERS Safety Report 24800813 (Version 3)
Quarter: 2025Q1

REPORT INFORMATION
  Report Type: Spontaneous
  Country: CA (occurrence: CA)
  Receive Date: 20250102
  Receipt Date: 20250227
  Transmission Date: 20250409
  Serious: Yes (Other)
  Sender: PFIZER
  Company Number: CA-PFIZER INC-202400335565

PATIENT
  Age: 69 Year
  Sex: Male

DRUGS (14)
  1. RUXIENCE [Suspect]
     Active Substance: RITUXIMAB-PVVR
     Indication: Rheumatoid arthritis
     Route: 042
     Dates: start: 20240516, end: 20240530
  2. ARAVA [Concomitant]
     Active Substance: LEFLUNOMIDE
  3. BRICANYL [Concomitant]
     Active Substance: TERBUTALINE SULFATE
  4. CELEBREX [Concomitant]
     Active Substance: CELECOXIB
  5. CELECOXIB [Concomitant]
     Active Substance: CELECOXIB
  6. FOLIC ACID [Concomitant]
     Active Substance: FOLIC ACID
  7. FLUTICASONE PROPIONATE [Concomitant]
     Active Substance: FLUTICASONE PROPIONATE
  8. LANSOPRAZOLE [Concomitant]
     Active Substance: LANSOPRAZOLE
  9. MYCOPHENOLIC ACID [Concomitant]
     Active Substance: MYCOPHENOLIC ACID
  10. PLAQUENIL [Concomitant]
     Active Substance: HYDROXYCHLOROQUINE SULFATE
  11. RAMIPRIL [Concomitant]
     Active Substance: RAMIPRIL
  12. RISEDRONATE SODIUM [Concomitant]
     Active Substance: RISEDRONATE SODIUM
  13. SULFAMETHOXAZOLE [Concomitant]
     Active Substance: SULFAMETHOXAZOLE
  14. GLYCOPYRRONIUM\INDACATEROL [Concomitant]
     Active Substance: GLYCOPYRRONIUM\INDACATEROL

REACTIONS (1)
  - Interstitial lung disease [Unknown]
